FAERS Safety Report 19473992 (Version 1)
Quarter: 2021Q2

REPORT INFORMATION
  Report Type: Spontaneous
  Country: CA (occurrence: CA)
  Receive Date: 20210629
  Receipt Date: 20210629
  Transmission Date: 20210717
  Serious: Yes (Death, Life-Threatening, Hospitalization, Other)
  Sender: FDA-Public Use
  Company Number: CA-MYLANLABS-01P-028-0113881-00

PATIENT
  Age: 25 Year
  Sex: Female

DRUGS (1)
  1. VALPROIC ACID. [Suspect]
     Active Substance: VALPROIC ACID
     Indication: PRODUCT USED FOR UNKNOWN INDICATION
     Dosage: 500 MILLIGRAM, BID
     Route: 065

REACTIONS (19)
  - Unresponsive to stimuli [Unknown]
  - Thrombocytopenia [Unknown]
  - Eye movement disorder [Unknown]
  - Dyspnoea [Unknown]
  - Hypotonia [Unknown]
  - Myelopathy [Unknown]
  - Brain oedema [Unknown]
  - Suicide attempt [Unknown]
  - Intentional overdose [Recovered/Resolved]
  - Rales [Unknown]
  - Ammonia increased [Unknown]
  - Deep vein thrombosis [Unknown]
  - Vomiting [Unknown]
  - Blood creatine phosphokinase increased [Unknown]
  - Antipsychotic drug level increased [Recovered/Resolved]
  - Pulmonary embolism [Fatal]
  - Pneumonia [Fatal]
  - Atelectasis [Unknown]
  - Haemoglobin decreased [Unknown]
